FAERS Safety Report 4955318-0 (Version None)
Quarter: 2006Q1

REPORT INFORMATION
  Report Type: 
  Country: None (occurrence: None)
  Receive Date: 20060328
  Receipt Date: 20060315
  Transmission Date: 20060701
  Serious: Yes (Death, Hospitalization)
  Sender: FDA-Public Use
  Company Number: US-JNJFOC-20031203295

PATIENT
  Sex: Male

DRUGS (12)
  1. DOXIL [Suspect]
     Indication: MULTIPLE MYELOMA
     Dosage: 88MG (40MG/M2), 2 CYCLES
     Route: 042
  2. THALIDOMIDE [Suspect]
     Route: 048
  3. THALIDOMIDE [Suspect]
     Indication: MULTIPLE MYELOMA
     Route: 048
  4. DEXAMETHASONE TAB [Suspect]
     Indication: MULTIPLE MYELOMA
     Dosage: 40MG DAYS 1-4 AND DAYS 15-18
     Route: 048
  5. PLAVIX [Concomitant]
  6. TIAZAC [Concomitant]
  7. IRBESARTAN [Concomitant]
  8. LASIX [Concomitant]
  9. RANITIDINE [Concomitant]
  10. SIMVASTATIN [Concomitant]
  11. CLONIDINE [Concomitant]
  12. POTASSIUM [Concomitant]

REACTIONS (5)
  - ACUTE RESPIRATORY DISTRESS SYNDROME [None]
  - MYOCARDIAL INFARCTION [None]
  - PNEUMONIA [None]
  - RESPIRATORY FAILURE [None]
  - SEPSIS [None]
